FAERS Safety Report 6721958-1 (Version None)
Quarter: 2010Q2

REPORT INFORMATION
  Report Type: 
  Country: None (occurrence: None)
  Receive Date: 20100512
  Receipt Date: 20100506
  Transmission Date: 20101027
  Serious: Yes (Other)
  Sender: FDA-Public Use
  Company Number: A0858540A

PATIENT
  Age: 51 Year
  Sex: Male

DRUGS (7)
  1. BECONASE [Suspect]
     Dosage: 2SPR TWICE PER DAY
     Route: 045
     Dates: start: 20050101, end: 20050101
  2. FLONASE [Suspect]
     Dosage: 1SPR TWICE PER DAY
     Route: 045
     Dates: start: 20070101, end: 20070101
  3. VERAMYST [Suspect]
     Dosage: 1SPR TWICE PER DAY
     Route: 045
     Dates: start: 20100301
  4. ALBUTEROL SULATE [Concomitant]
  5. STEROID INHALED [Concomitant]
  6. SYMBICORT [Concomitant]
  7. PROTONIX [Concomitant]

REACTIONS (4)
  - ANOSMIA [None]
  - DYSGEUSIA [None]
  - EPISTAXIS [None]
  - NASAL ODOUR [None]
